FAERS Safety Report 24646465 (Version 2)
Quarter: 2024Q4

REPORT INFORMATION
  Report Type: Spontaneous
  Country: JP (occurrence: JP)
  Receive Date: 20241121
  Receipt Date: 20241212
  Transmission Date: 20250115
  Serious: Yes (Hospitalization)
  Sender: GLAXOSMITHKLINE
  Company Number: None

PATIENT

DRUGS (7)
  1. SERETIDE [Suspect]
     Active Substance: FLUTICASONE PROPIONATE\SALMETEROL XINAFOATE
     Indication: Asthma
     Dosage: UNK, BID
  2. MONTELUKAST [Concomitant]
     Active Substance: MONTELUKAST
     Dosage: UNK
  3. TULOBUTEROL [Concomitant]
     Active Substance: TULOBUTEROL
     Dosage: UNK
  4. PROCATEROL HYDROCHLORIDE [Concomitant]
     Active Substance: PROCATEROL HYDROCHLORIDE
     Dosage: UNK
  5. PROCATEROL HYDROCHLORIDE [Concomitant]
     Active Substance: PROCATEROL HYDROCHLORIDE
     Dosage: UNK, EIGHT TIMES PER DAY
  6. BUDESONIDE\FORMOTEROL [Concomitant]
     Active Substance: BUDESONIDE\FORMOTEROL
     Indication: Asthma
     Dosage: EIGHT INHALATIONS/DAY
  7. TIOTROPIUM BROMIDE MONOHYDRATE [Concomitant]
     Active Substance: TIOTROPIUM BROMIDE MONOHYDRATE
     Indication: Asthma
     Dosage: UNK

REACTIONS (4)
  - Chronic rhinosinusitis with nasal polyps [Unknown]
  - Chronic eosinophilic rhinosinusitis [Unknown]
  - Asthma [Unknown]
  - Therapeutic response decreased [Unknown]
